FAERS Safety Report 6947187-4 (Version None)
Quarter: 2010Q3

REPORT INFORMATION
  Report Type: 
  Country: None (occurrence: None)
  Receive Date: 20100827
  Receipt Date: 20090901
  Transmission Date: 20110219
  Serious: No
  Sender: FDA-Public Use
  Company Number: US-ABBOTT-09P-163-0595243-00

PATIENT
  Sex: Male
  Weight: 97.61 kg

DRUGS (7)
  1. NIASPAN [Suspect]
     Indication: BLOOD CHOLESTEROL INCREASED
     Route: 048
     Dates: start: 20090701
  2. LISINOPRIL [Concomitant]
     Indication: HYPERTENSION
     Route: 048
  3. BYSTOLIC [Concomitant]
     Indication: HYPERTENSION
     Route: 048
  4. RED YEAST RICE CAPSULES [Concomitant]
     Indication: SUPPLEMENTATION THERAPY
     Route: 048
  5. FISH OIL [Concomitant]
     Indication: MEDICAL DIET
     Route: 048
  6. ASPIRIN [Concomitant]
     Indication: FLUSHING
     Route: 048
  7. ASPIRIN [Concomitant]
     Indication: PROPHYLAXIS

REACTIONS (1)
  - FEELING HOT [None]
